FAERS Safety Report 5338357-X (Version None)
Quarter: 2007Q2

REPORT INFORMATION
  Report Type: 
  Country: None (occurrence: None)
  Receive Date: 20070322
  Receipt Date: 20060516
  Transmission Date: 20071010
  Serious: Yes (Other)
  Sender: FDA-Public Use
  Company Number: 200514564BCC

PATIENT
  Age: 70 Year
  Sex: Male
  Weight: 113.3993 kg

DRUGS (17)
  1. ALEVE [Suspect]
     Indication: ARTHRALGIA
     Dosage: 220 MG, ONCE, ORAL
     Route: 048
     Dates: start: 20051106
  2. ALTACE [Suspect]
     Indication: DIABETES MELLITUS
     Dosage: 2.50 MG, QD, ORAL
     Route: 048
  3. ALTACE [Suspect]
     Indication: HYPERTENSION
     Dosage: 2.50 MG, QD, ORAL
     Route: 048
  4. COLACE (DOCUSATE SODIUM) [Suspect]
     Dosage: 100 MG, BID, NI
  5. ASPIRIN [Concomitant]
  6. TENORMIN [Concomitant]
  7. PLAVIX [Concomitant]
  8. ZETIA [Concomitant]
  9. TRICOR [Concomitant]
  10. LASIX [Concomitant]
  11. NEURONTIN [Concomitant]
  12. GLUCOTROL [Concomitant]
  13. PREVACID [Concomitant]
  14. DITROPAN XL [Concomitant]
  15. ZOCOR [Concomitant]
  16. AZULFIDINE [Concomitant]
  17. PERCOCET [Concomitant]

REACTIONS (3)
  - HYPERSENSITIVITY [None]
  - PHARYNGEAL OEDEMA [None]
  - SWOLLEN TONGUE [None]
